FAERS Safety Report 13628799 (Version 1)
Quarter: 2017Q2

REPORT INFORMATION
  Report Type: Spontaneous
  Country: US (occurrence: US)
  Receive Date: 20170531
  Receipt Date: 20170531
  Transmission Date: 20170830
  Serious: No
  Sender: FDA-Public Use
  Company Number: US-ASTELLAS-1049727

PATIENT
  Sex: Female

DRUGS (1)
  1. TARCEVA [Suspect]
     Active Substance: ERLOTINIB HYDROCHLORIDE
     Indication: PRODUCT USED FOR UNKNOWN INDICATION
     Route: 048

REACTIONS (7)
  - Eye disorder [Unknown]
  - Tooth fracture [Unknown]
  - Vision blurred [Unknown]
  - Adverse drug reaction [Unknown]
  - Eye irritation [Unknown]
  - Device failure [Unknown]
  - Eye pruritus [Unknown]
